FAERS Safety Report 8132723-5 (Version None)
Quarter: 2012Q1

REPORT INFORMATION
  Report Type: 
  Country: None (occurrence: None)
  Receive Date: 20120213
  Receipt Date: 20120208
  Transmission Date: 20120608
  Serious: Yes (Other)
  Sender: FDA-Public Use
  Company Number: IL-PFIZER INC-2012035782

PATIENT
  Sex: Female

DRUGS (1)
  1. IBUPROFEN (ADVIL) [Suspect]
     Indication: HEADACHE
     Dosage: 200 MG, UNK

REACTIONS (5)
  - PRURITUS [None]
  - HYPERSENSITIVITY [None]
  - SWELLING [None]
  - ASPHYXIA [None]
  - RASH GENERALISED [None]
